FAERS Safety Report 8367655-0 (Version None)
Quarter: 2012Q2

REPORT INFORMATION
  Report Type: 
  Country: None (occurrence: None)
  Receive Date: 20120517
  Receipt Date: 20110601
  Transmission Date: 20120825
  Serious: Yes (Other)
  Sender: FDA-Public Use
  Company Number: PHHO2005NZ19296

PATIENT
  Sex: Male

DRUGS (3)
  1. CLOZARIL [Suspect]
     Indication: SCHIZOPHRENIA
     Dosage: 250 MG NOCTE
     Route: 048
     Dates: start: 20050502, end: 20050519
  2. SIMVASTATIN [Concomitant]
     Dosage: 40 MG, DAILY
     Route: 048
  3. CLOZARIL [Suspect]
     Dosage: 150 MG, DAILY
     Route: 048
     Dates: start: 20110414

REACTIONS (4)
  - LOWER RESPIRATORY TRACT INFECTION [None]
  - SALIVARY HYPERSECRETION [None]
  - TACHYCARDIA [None]
  - DIASTOLIC DYSFUNCTION [None]
